FAERS Safety Report 7338707-9 (Version None)
Quarter: 2011Q1

REPORT INFORMATION
  Report Type: 
  Country: None (occurrence: None)
  Receive Date: 20110308
  Receipt Date: 20110228
  Transmission Date: 20110831
  Serious: Yes (Other)
  Sender: FDA-Public Use
  Company Number: A0916995A

PATIENT
  Age: 65 Year
  Sex: Female
  Weight: 81.4 kg

DRUGS (23)
  1. OMACOR [Suspect]
     Route: 048
  2. NEURONTIN [Suspect]
     Route: 048
  3. ZOLOFT [Concomitant]
  4. ISOSORBIDE MONONITRATE [Concomitant]
  5. CALCIUM [Concomitant]
  6. LYSINE [Concomitant]
  7. OMEPRAZOLE [Concomitant]
  8. ASA [Concomitant]
  9. MULTI-VITAMIN [Concomitant]
  10. DETROL LA [Suspect]
     Route: 048
  11. SERTRALINE HYDROCHLORIDE [Concomitant]
  12. SPIRONOLACTONE [Concomitant]
  13. FUROSEMIDE [Concomitant]
  14. SYNTHROID [Concomitant]
  15. ATENOLOL [Concomitant]
  16. TRAMADOL [Suspect]
     Indication: BACK PAIN
     Route: 048
  17. ZYRTEC [Concomitant]
  18. OXYBUTYNIN [Concomitant]
  19. SIMVASTATIN [Concomitant]
  20. COZAAR [Concomitant]
  21. PLAVIX [Concomitant]
  22. FENOFIBRATE [Concomitant]
  23. METHOCARBAMOL [Concomitant]

REACTIONS (2)
  - HEART VALVE INCOMPETENCE [None]
  - CARDIAC OPERATION [None]
